FAERS Safety Report 25019990 (Version 1)
Quarter: 2025Q1

REPORT INFORMATION
  Report Type: Spontaneous
  Country: US (occurrence: US)
  Receive Date: 20250227
  Receipt Date: 20250227
  Transmission Date: 20250408
  Serious: Yes (Other)
  Sender: NOVARTIS
  Company Number: US-SANDOZ-SDZ2025US010805

PATIENT
  Sex: Female

DRUGS (17)
  1. ONDANSETRON [Suspect]
     Active Substance: ONDANSETRON
     Indication: Psoriatic arthropathy
     Route: 048
  2. HYDROCHLOROTHIAZIDE [Suspect]
     Active Substance: HYDROCHLOROTHIAZIDE
     Indication: Psoriatic arthropathy
     Dosage: UNK UNK, QD (TAKE 1 TABLET BY ORAL ROUTE EVERY DAY)
     Route: 048
  3. PANTOPRAZOLE [Suspect]
     Active Substance: PANTOPRAZOLE
     Indication: Psoriatic arthropathy
     Dosage: UNK UNK, QD (TAKE 1 TABLET BY ORAL ROUTE EVERY DAY)
     Route: 048
  4. DICLOFENAC [Suspect]
     Active Substance: DICLOFENAC
     Indication: Psoriatic arthropathy
     Dosage: UNK UNK, QD (APPLY 2 TUBE BY TOPICAL ROUTE 4 TIMES EVERY DAY TO THE AFFECTED AREA(S)) (TOPICAL)
     Route: 050
  5. DICLOFENAC [Suspect]
     Active Substance: DICLOFENAC
     Route: 050
     Dates: start: 20241119
  6. SUMATRIPTAN [Suspect]
     Active Substance: SUMATRIPTAN
     Indication: Migraine
     Route: 048
  7. LEFLUNOMIDE [Suspect]
     Active Substance: LEFLUNOMIDE
     Indication: Product used for unknown indication
     Route: 048
     Dates: start: 20231214, end: 20250109
  8. ILARIS [Suspect]
     Active Substance: CANAKINUMAB
     Indication: Prostatic specific antigen
     Dosage: 300 MG, Q4W
     Route: 058
     Dates: start: 20241212
  9. ILARIS [Suspect]
     Active Substance: CANAKINUMAB
     Indication: Still^s disease
  10. HYDROXYCHLOROQUINE [Suspect]
     Active Substance: HYDROXYCHLOROQUINE
     Indication: Psoriatic arthropathy
     Dosage: 400 MG, QD (TAKE 1 TABLET BY ORAL ROUTE 2 TIMES EVERY DAY)
     Route: 048
     Dates: start: 20240621, end: 20250109
  11. CELECOXIB [Suspect]
     Active Substance: CELECOXIB
     Indication: Product used for unknown indication
     Dosage: 200 MG, QD (TAKE 1 CAPSULE BY MOUTH TWICE A DAY)
     Route: 048
     Dates: start: 20241112
  12. PREDNISONE [Suspect]
     Active Substance: PREDNISONE
     Indication: Arthritis
     Dosage: 5 MG, QD (TAKE 3 TABS BY MOUTH DAILY)
     Route: 065
     Dates: start: 20220920
  13. PREDNISONE [Suspect]
     Active Substance: PREDNISONE
     Route: 048
     Dates: start: 20240912
  14. VILAZODONE [Suspect]
     Active Substance: VILAZODONE
     Indication: Product used for unknown indication
     Dosage: 40 MG, QD (TAKE 2 TABLET BY ORAL ROUTE EVERY DAY WITH FOOD)
     Route: 048
  15. NABUMETONE [Suspect]
     Active Substance: NABUMETONE
     Indication: Arthritis
     Route: 048
     Dates: start: 20230804, end: 20250109
  16. COLCHICINE [Suspect]
     Active Substance: COLCHICINE
     Indication: Product used for unknown indication
     Dosage: UNK UNK, QD (TAKE 1 TABLET BY ORAL ROUTE EVERY DAY)
     Route: 048
     Dates: start: 20231102
  17. ZEPBOUND [Suspect]
     Active Substance: TIRZEPATIDE
     Indication: Product used for unknown indication
     Dosage: 2.5 MG, Q4W
     Route: 058

REACTIONS (5)
  - Psoriatic arthropathy [Unknown]
  - Sleep apnoea syndrome [Not Recovered/Not Resolved]
  - Weight decreased [Unknown]
  - Diarrhoea [Unknown]
  - Therapeutic product effect incomplete [Unknown]
